FAERS Safety Report 4512154-7 (Version None)
Quarter: 2004Q4

REPORT INFORMATION
  Report Type: 
  Country: None (occurrence: None)
  Receive Date: 20041129
  Receipt Date: 20040817
  Transmission Date: 20050328
  Serious: No
  Sender: FDA-Public Use
  Company Number: US-GLAXOSMITHKLINE-A0522463A

PATIENT
  Sex: Female

DRUGS (4)
  1. DIGOXIN [Suspect]
     Indication: ATRIAL FIBRILLATION
     Dosage: .125MG PER DAY
     Route: 048
  2. METOPROLOL [Concomitant]
  3. PREVIDENT [Concomitant]
  4. ASPIRIN [Concomitant]

REACTIONS (2)
  - DEVICE INTERACTION [None]
  - TOOTH DISCOLOURATION [None]
